FAERS Safety Report 7314438-6 (Version None)
Quarter: 2011Q1

REPORT INFORMATION
  Report Type: 
  Country: None (occurrence: None)
  Receive Date: 20110225
  Receipt Date: 20100823
  Transmission Date: 20110831
  Serious: No
  Sender: FDA-Public Use
  Company Number: US-MYLANLABS-2010S1015399

PATIENT
  Age: 46 Year
  Sex: Female

DRUGS (4)
  1. SYNTHROID [Concomitant]
     Indication: THYROID DISORDER
  2. AMNESTEEM [Suspect]
     Indication: ACNE
     Route: 048
     Dates: end: 20100701
  3. CLARAVIS [Suspect]
     Route: 048
  4. CLARAVIS [Suspect]
     Indication: ACNE
     Route: 048
     Dates: start: 20090101

REACTIONS (1)
  - ARTHRALGIA [None]
